FAERS Safety Report 5706497-9 (Version None)
Quarter: 2008Q2

REPORT INFORMATION
  Report Type: 
  Country: None (occurrence: None)
  Receive Date: 20080414
  Receipt Date: 20080328
  Transmission Date: 20081010
  Serious: No
  Sender: FDA-Public Use
  Company Number: 002#2#2008-00177

PATIENT
  Sex: Male

DRUGS (3)
  1. NEUPRO-PATCH                    (ROTIGOTINE) [Suspect]
     Indication: DRUG USE FOR UNKNOWN INDICATION
     Dosage: 4MG/24H,1 IN 1 D,TRANSDERMAL;  6MG/24H,1 IN 1 D,TRANSDERMAL
     Route: 062
     Dates: start: 20070901, end: 20080101
  2. NEUPRO-PATCH                    (ROTIGOTINE) [Suspect]
     Indication: DRUG USE FOR UNKNOWN INDICATION
     Dosage: 4MG/24H,1 IN 1 D,TRANSDERMAL;  6MG/24H,1 IN 1 D,TRANSDERMAL
     Route: 062
     Dates: start: 20070901, end: 20080101
  3. NEUPRO [Suspect]
     Indication: DRUG USE FOR UNKNOWN INDICATION
     Dosage: 6MG/24H
     Route: 062
     Dates: start: 20070901, end: 20080101

REACTIONS (2)
  - APPLICATION SITE BURN [None]
  - PAIN IN EXTREMITY [None]
